FAERS Safety Report 13403575 (Version 1)
Quarter: 2017Q2

REPORT INFORMATION
  Report Type: Spontaneous
  Country: US (occurrence: US)
  Receive Date: 20170405
  Receipt Date: 20170405
  Transmission Date: 20170830
  Serious: Yes (Life-Threatening, Hospitalization)
  Sender: FDA-Public Use
  Company Number: US-PFIZER INC-2017141482

PATIENT
  Age: 58 Year
  Sex: Female
  Weight: 100 kg

DRUGS (7)
  1. TORADOL [Concomitant]
     Active Substance: KETOROLAC TROMETHAMINE
     Indication: PAIN MANAGEMENT
     Dosage: 15 MG, UNK
     Route: 042
  2. FENTANYL. [Concomitant]
     Active Substance: FENTANYL
     Indication: PAIN MANAGEMENT
     Dosage: 50 UG, UNK
     Route: 040
  3. KETAMINE HCL [Suspect]
     Active Substance: KETAMINE HYDROCHLORIDE
     Indication: ANALGESIC THERAPY
     Dosage: 0.15 MG/KG, ^1 H^1
     Route: 041
  4. KETAMINE HCL [Suspect]
     Active Substance: KETAMINE HYDROCHLORIDE
     Dosage: 1 MG/KG, (ONLY 50 MG WAS USED)
     Route: 040
  5. CEFAZOLIN [Concomitant]
     Active Substance: CEFAZOLIN
     Indication: ARTHRITIS BACTERIAL
     Dosage: 1 G, UNK
  6. DOXYCYCLINE. [Concomitant]
     Active Substance: DOXYCYCLINE
     Indication: ARTHRITIS BACTERIAL
     Dosage: 100 MG, UNK
  7. MORPHINE [Concomitant]
     Active Substance: MORPHINE
     Indication: PAIN MANAGEMENT
     Dosage: 8 MG, UNK
     Route: 042

REACTIONS (2)
  - Hypertension [Recovered/Resolved]
  - Acute pulmonary oedema [Unknown]
